FAERS Safety Report 22040405 (Version 1)
Quarter: 2023Q1

REPORT INFORMATION
  Report Type: Spontaneous
  Country: US (occurrence: US)
  Receive Date: 20230227
  Receipt Date: 20230227
  Transmission Date: 20230418
  Serious: No
  Sender: FDA-Public Use
  Company Number: US-REGENERON PHARMACEUTICALS, INC.-2022-141932

PATIENT
  Sex: Female

DRUGS (1)
  1. EVKEEZA [Suspect]
     Active Substance: EVINACUMAB-DGNB
     Indication: Type IIa hyperlipidaemia
     Dosage: UNK
     Route: 042
     Dates: start: 20210723

REACTIONS (10)
  - Illness [Unknown]
  - Foot fracture [Unknown]
  - Ligament rupture [Unknown]
  - Ligament sprain [Unknown]
  - Joint injury [Unknown]
  - Walking disability [Unknown]
  - Weight bearing difficulty [Unknown]
  - Pain [Unknown]
  - Memory impairment [Unknown]
  - Somnolence [Unknown]

NARRATIVE: CASE EVENT DATE: 20220101
